FAERS Safety Report 8122414-9 (Version None)
Quarter: 2012Q1

REPORT INFORMATION
  Report Type: 
  Country: None (occurrence: None)
  Receive Date: 20120208
  Receipt Date: 20120130
  Transmission Date: 20120608
  Serious: Yes (Other)
  Sender: FDA-Public Use
  Company Number: JP-GLAXOSMITHKLINE-B0779135A

PATIENT
  Age: 7 Year
  Sex: Male

DRUGS (1)
  1. RELENZA [Suspect]
     Indication: INFLUENZA
     Route: 055
     Dates: start: 20120130, end: 20120130

REACTIONS (2)
  - UNRESPONSIVE TO STIMULI [None]
  - ABNORMAL BEHAVIOUR [None]
